FAERS Safety Report 6734744-3 (Version None)
Quarter: 2010Q2

REPORT INFORMATION
  Report Type: 
  Country: None (occurrence: None)
  Receive Date: 20100519
  Receipt Date: 20100519
  Transmission Date: 20101027
  Serious: Yes (Hospitalization, Other)
  Sender: FDA-Public Use
  Company Number: None

PATIENT
  Age: 80 Year
  Sex: Female
  Weight: 67.1324 kg

DRUGS (1)
  1. EFFEXOR XR [Suspect]
     Dosage: 75 MG 1 PER DAY OR OCCASSIONALLY SEPT 19 ONWARD TO APRIL

REACTIONS (1)
  - MEMORY IMPAIRMENT [None]
